FAERS Safety Report 5398608-2 (Version None)
Quarter: 2007Q3

REPORT INFORMATION
  Report Type: 
  Country: None (occurrence: None)
  Receive Date: 20070726
  Receipt Date: 20060614
  Transmission Date: 20080115
  Serious: No
  Sender: FDA-Public Use
  Company Number: US-AMGEN-KDL183124

PATIENT
  Sex: Male

DRUGS (7)
  1. PROCRIT [Suspect]
     Indication: RENAL FAILURE CHRONIC
     Route: 058
     Dates: start: 20060608
  2. FLEXERIL [Concomitant]
  3. CARDURA [Concomitant]
  4. CARTIA XT [Concomitant]
  5. LISINOPRIL [Concomitant]
  6. MEVACOR [Concomitant]
  7. HYDROCHLOROTHIAZIDE [Concomitant]

REACTIONS (2)
  - ANGIOEDEMA [None]
  - PRURITUS [None]
